FAERS Safety Report 23686890 (Version 1)
Quarter: 2024Q1

REPORT INFORMATION
  Report Type: Spontaneous
  Country: US (occurrence: None)
  Receive Date: 20240328
  Receipt Date: 20240328
  Transmission Date: 20240410
  Serious: Yes (Other)
  Sender: FDA-Public Use
  Company Number: None

PATIENT
  Age: 75 Year
  Sex: Female
  Weight: 72 kg

DRUGS (1)
  1. GAMMAGARD LIQUID [Suspect]
     Active Substance: HUMAN IMMUNOGLOBULIN G
     Indication: Plasma cell myeloma
     Dosage: OTHER FREQUENCY : EVERY 4 WEEKS;?
     Route: 041
     Dates: start: 20240301, end: 20240301

REACTIONS (5)
  - Back pain [None]
  - Dyspnoea [None]
  - Body temperature increased [None]
  - Oxygen saturation decreased [None]
  - Cardio-respiratory arrest [None]

NARRATIVE: CASE EVENT DATE: 20240301
